FAERS Safety Report 19732393 (Version 1)
Quarter: 2021Q3

REPORT INFORMATION
  Report Type: Report from Study
  Country: US (occurrence: US)
  Receive Date: 20210822
  Receipt Date: 20210822
  Transmission Date: 20211014
  Serious: Yes (Hospitalization, Other)
  Sender: FDA-Public Use
  Company Number: US-GILEAD-2021-0544702

PATIENT
  Age: 66 Year
  Sex: Male

DRUGS (2)
  1. PULMOZYME [Concomitant]
     Active Substance: DORNASE ALFA
  2. AZTREONAM LYSINE [Suspect]
     Active Substance: AZTREONAM LYSINE
     Indication: CYSTIC FIBROSIS
     Dosage: 1 VIAL, TID, FOR 28 DAYS ON AND 28 DAYS OFF
     Route: 055
     Dates: start: 20180321

REACTIONS (1)
  - Respiratory disorder [Recovered/Resolved]

NARRATIVE: CASE EVENT DATE: 20210730
